FAERS Safety Report 7517845-1 (Version None)
Quarter: 2011Q2

REPORT INFORMATION
  Report Type: 
  Country: None (occurrence: None)
  Receive Date: 20110602
  Receipt Date: 20081003
  Transmission Date: 20111010
  Serious: No
  Sender: FDA-Public Use
  Company Number: 2008BI022813

PATIENT
  Age: 56 Year
  Sex: Female

DRUGS (1)
  1. TYSABRI [Suspect]
     Indication: MULTIPLE SCLEROSIS
     Route: 042
     Dates: start: 20080725

REACTIONS (5)
  - PAIN IN EXTREMITY [None]
  - DIZZINESS [None]
  - NECK PAIN [None]
  - FATIGUE [None]
  - BLOOD CHOLESTEROL INCREASED [None]
